FAERS Safety Report 10289397 (Version 2)
Quarter: 2014Q3

REPORT INFORMATION
  Report Type: Spontaneous
  Country: MA (occurrence: MA)
  Receive Date: 20140710
  Receipt Date: 20140710
  Transmission Date: 20150326
  Serious: Yes (Other)
  Sender: FDA-Public Use
  Company Number: MA-ACCORD-024638

PATIENT
  Age: 19 Year
  Sex: Female

DRUGS (1)
  1. METHOTREXATE [Suspect]
     Active Substance: METHOTREXATE
     Indication: ACUTE LYMPHOCYTIC LEUKAEMIA
     Dosage: MTX WITH HIGH ?AMOUNT (5G)?PROTOCOL MARALL

REACTIONS (10)
  - Melanoderma [Recovering/Resolving]
  - Renal failure [Recovering/Resolving]
  - Colitis [Recovering/Resolving]
  - Mouth ulceration [Recovering/Resolving]
  - Toxicity to various agents [Recovering/Resolving]
  - Cheilitis [Recovering/Resolving]
  - Hepatosplenomegaly [Recovering/Resolving]
  - Aplasia [Recovering/Resolving]
  - Hepatocellular injury [Recovering/Resolving]
  - Pyrexia [Recovering/Resolving]
